FAERS Safety Report 9891176 (Version 3)
Quarter: 2014Q1

REPORT INFORMATION
  Report Type: Spontaneous
  Country: DE (occurrence: DE)
  Receive Date: 20140212
  Receipt Date: 20140317
  Transmission Date: 20141002
  Serious: Yes (Other)
  Sender: FDA-Public Use
  Company Number: DE-JNJFOC-20140205942

PATIENT
  Age: 76 Year
  Sex: Male
  Weight: 94 kg

DRUGS (8)
  1. XARELTO [Suspect]
     Indication: ATRIAL FIBRILLATION
     Route: 048
     Dates: start: 20131205, end: 20140203
  2. XARELTO [Suspect]
     Indication: CEREBROVASCULAR ACCIDENT PROPHYLAXIS
     Route: 048
     Dates: start: 20131205, end: 20140203
  3. METFORMIN [Concomitant]
     Route: 065
  4. SIMVABETA [Concomitant]
     Route: 065
  5. COAPROVEL [Concomitant]
     Route: 065
  6. BISOPROLOL [Concomitant]
     Route: 065
  7. WARFARIN [Concomitant]
     Route: 065
  8. MARCUMAR [Concomitant]
     Route: 065
     Dates: end: 20131202

REACTIONS (3)
  - Urinary bladder haemorrhage [Unknown]
  - Bladder cyst [Unknown]
  - Haematuria [Recovered/Resolved]
